APPROVED DRUG PRODUCT: PARADIONE
Active Ingredient: PARAMETHADIONE
Strength: 300MG/ML
Dosage Form/Route: SOLUTION;ORAL
Application: N006800 | Product #002
Applicant: ABBVIE INC
Approved: Approved Prior to Jan 1, 1982 | RLD: No | RS: No | Type: DISCN